FAERS Safety Report 8371968-6 (Version None)
Quarter: 2012Q2

REPORT INFORMATION
  Report Type: 
  Country: None (occurrence: None)
  Receive Date: 20120518
  Receipt Date: 20120514
  Transmission Date: 20120825
  Serious: Yes (Death, Hospitalization, Other)
  Sender: FDA-Public Use
  Company Number: US-MERCK-1102USA01696

PATIENT
  Age: 79 Year
  Sex: Male

DRUGS (6)
  1. FOSAMAX [Suspect]
     Route: 048
     Dates: start: 19981024, end: 19981201
  2. FOSAMAX [Suspect]
     Route: 048
  3. FOSAMAX [Suspect]
     Indication: OSTEOPOROSIS
     Route: 048
     Dates: start: 19980101, end: 20030101
  4. FOSAMAX [Suspect]
     Route: 048
     Dates: end: 20070101
  5. FOSAMAX [Suspect]
     Route: 048
     Dates: start: 19990201
  6. FOSAMAX [Suspect]
     Route: 048
     Dates: start: 20040515

REACTIONS (64)
  - DEMENTIA ALZHEIMER'S TYPE [None]
  - HIATUS HERNIA [None]
  - FEMORAL NECK FRACTURE [None]
  - HIP FRACTURE [None]
  - OSTEOARTHRITIS [None]
  - RENAL CYST [None]
  - DIARRHOEA [None]
  - FIBULA FRACTURE [None]
  - MYOCARDIAL INFARCTION [None]
  - DRUG ABUSE [None]
  - HERNIA [None]
  - SPINAL COMPRESSION FRACTURE [None]
  - JOINT EFFUSION [None]
  - ANAEMIA [None]
  - HAEMORRHAGIC ANAEMIA [None]
  - RESPIRATORY FAILURE [None]
  - ASTHENIA [None]
  - EROSIVE OESOPHAGITIS [None]
  - MELANOSIS COLI [None]
  - GAIT DISTURBANCE [None]
  - TOOTH FRACTURE [None]
  - GASTROOESOPHAGEAL REFLUX DISEASE [None]
  - FAECALOMA [None]
  - CEREBROVASCULAR DISORDER [None]
  - FEMUR FRACTURE [None]
  - JOINT INJURY [None]
  - HYPONATRAEMIA [None]
  - HYPERGLYCAEMIA [None]
  - PNEUMONIA [None]
  - TIBIA FRACTURE [None]
  - SKIN ULCER [None]
  - ULCER [None]
  - LIMB INJURY [None]
  - DYSPHAGIA [None]
  - DRUG HYPERSENSITIVITY [None]
  - AGITATION [None]
  - BRADYARRHYTHMIA [None]
  - ASPIRATION [None]
  - PNEUMONIA ASPIRATION [None]
  - PHIMOSIS [None]
  - UPPER GASTROINTESTINAL HAEMORRHAGE [None]
  - FALL [None]
  - WEIGHT INCREASED [None]
  - ANAEMIA POSTOPERATIVE [None]
  - FRACTURED SACRUM [None]
  - FRACTURE DELAYED UNION [None]
  - PUBIS FRACTURE [None]
  - UROSEPSIS [None]
  - EFFUSION [None]
  - BALANITIS [None]
  - LUNG DISORDER [None]
  - HAEMORRHOIDS [None]
  - ANGIOPATHY [None]
  - TYPE 2 DIABETES MELLITUS [None]
  - ABDOMINAL DISTENSION [None]
  - ADVERSE DRUG REACTION [None]
  - GASTROINTESTINAL HAEMORRHAGE [None]
  - RENAL FAILURE ACUTE [None]
  - CEREBRAL ATROPHY [None]
  - GLUCOSE TOLERANCE IMPAIRED [None]
  - HYPOKALAEMIA [None]
  - BONE LOSS [None]
  - OEDEMA PERIPHERAL [None]
  - DEVICE COMPONENT ISSUE [None]
